FAERS Safety Report 6134062-0 (Version None)
Quarter: 2009Q1

REPORT INFORMATION
  Report Type: 
  Country: None (occurrence: None)
  Receive Date: 20090326
  Receipt Date: 20090318
  Transmission Date: 20090719
  Serious: Yes (Death, Other)
  Sender: FDA-Public Use
  Company Number: US-WYE-H08657809

PATIENT
  Sex: Female

DRUGS (3)
  1. PREMARIN [Suspect]
  2. NORETHINDRONE ACETATE [Suspect]
  3. PROVERA [Suspect]

REACTIONS (4)
  - BREAST CANCER METASTATIC [None]
  - DEEP VEIN THROMBOSIS [None]
  - NEUTROPENIA [None]
  - PLEURAL EFFUSION [None]
